FAERS Safety Report 19060448 (Version 1)
Quarter: 2021Q1

REPORT INFORMATION
  Report Type: Spontaneous
  Country: ES (occurrence: ES)
  Receive Date: 20210326
  Receipt Date: 20210326
  Transmission Date: 20210420
  Serious: Yes (Other)
  Sender: FDA-Public Use
  Company Number: ES-AUROBINDO-AUR-APL-2021-011668

PATIENT
  Age: 60 Year
  Sex: Female

DRUGS (2)
  1. ZOLPIDEM 10 MG FILM?COATED TABLETS [Suspect]
     Active Substance: ZOLPIDEM TARTRATE
     Indication: DEPRESSED MOOD
     Dosage: 10 MILLIGRAM, ONCE A DAY,0?0?1
     Route: 048
     Dates: start: 20210219, end: 20210221
  2. ESCITALOPRAM [Concomitant]
     Active Substance: ESCITALOPRAM OXALATE
     Indication: PRODUCT USED FOR UNKNOWN INDICATION
     Dosage: UNK
     Route: 065

REACTIONS (3)
  - Agitation [Recovered/Resolved]
  - Hallucination [Recovered/Resolved]
  - Amnesia [Recovered/Resolved]

NARRATIVE: CASE EVENT DATE: 202102
